FAERS Safety Report 14799860 (Version 2)
Quarter: 2018Q2

REPORT INFORMATION
  Report Type: Spontaneous
  Country: US (occurrence: US)
  Receive Date: 20180424
  Receipt Date: 20180425
  Transmission Date: 20180711
  Serious: Yes (Death, Life-Threatening, Other)
  Sender: FDA-Public Use
  Company Number: US-GLENMARK PHARMACEUTICALS-2018GMK034621

PATIENT
  Age: 33 Year
  Sex: Male

DRUGS (1)
  1. LIDOCAINE. [Suspect]
     Active Substance: LIDOCAINE
     Indication: GASTROOESOPHAGEAL REFLUX DISEASE
     Dosage: UNK
     Route: 055

REACTIONS (6)
  - Toxicity to various agents [Fatal]
  - Cardiac arrest [Fatal]
  - Brain injury [Fatal]
  - Intentional product misuse [Fatal]
  - Brain herniation [Fatal]
  - Cardiotoxicity [Fatal]
